FAERS Safety Report 11143975 (Version 1)
Quarter: 2015Q2

REPORT INFORMATION
  Report Type: Report from Study
  Country: IR (occurrence: IR)
  Receive Date: 20150526
  Receipt Date: 20150526
  Transmission Date: 20150821
  Serious: Yes (Death)
  Sender: FDA-Public Use
  Company Number: IR-ROCHE-1583288

PATIENT

DRUGS (2)
  1. ALTEPLASE [Suspect]
     Active Substance: ALTEPLASE
     Indication: ISCHAEMIC STROKE
     Dosage: 0.9 MG/KG, 10% OF WHICH WAS ADMINISTERED AS A BOLUS INTRAVENOUS DOSE AND THE REST WAS GIVEN IN THE F
     Route: 040
  2. ALTEPLASE [Suspect]
     Active Substance: ALTEPLASE
     Dosage: 0.9 MG/KG, 10% OF WHICH WAS ADMINISTERED AS A BOLUS INTRAVENOUS DOSE AND THE REST WAS GIVEN IN THE F
     Route: 042

REACTIONS (1)
  - Electrolyte imbalance [Fatal]
